FAERS Safety Report 17806702 (Version 1)
Quarter: 2020Q2

REPORT INFORMATION
  Report Type: Spontaneous
  Country: US (occurrence: US)
  Receive Date: 20200519
  Receipt Date: 20200519
  Transmission Date: 20200714
  Serious: Yes (Other)
  Sender: FDA-Public Use
  Company Number: None

PATIENT
  Age: 16 Year
  Sex: Male
  Weight: 51.4 kg

DRUGS (10)
  1. NOVOLOG 100 UNITS/ML [Concomitant]
     Active Substance: INSULIN ASPART
     Dates: start: 20190101
  2. BASAGLAR KWIKPEN 100UNITS/ML [Concomitant]
     Dates: start: 20190101
  3. LAMOTRIGINE 300MG TABLET [Concomitant]
     Dates: start: 20140101
  4. CLOBAZAM 20MG TABLET [Concomitant]
     Dates: start: 20140501
  5. RUFINAMIDE 400MG TABLET [Concomitant]
     Dates: start: 20140101
  6. RISPERIDONE 2MG TABLET [Concomitant]
     Dates: start: 20190101
  7. EPIDIOLEX [Suspect]
     Active Substance: CANNABIDIOL
     Indication: LENNOX-GASTAUT SYNDROME
     Route: 048
     Dates: start: 20200210, end: 20200326
  8. CLONIDINE 0.1MG TABLET [Concomitant]
     Dates: start: 20190701
  9. FLOVENT HFA 220MCG/INH [Concomitant]
     Dates: start: 20190101
  10. CLONAZEPAM 0.25MG ODT [Concomitant]
     Dates: start: 20060101

REACTIONS (1)
  - Aggression [None]

NARRATIVE: CASE EVENT DATE: 20200316
